FAERS Safety Report 18755945 (Version 2)
Quarter: 2021Q1

REPORT INFORMATION
  Report Type: Spontaneous
  Country: FR (occurrence: FR)
  Receive Date: 20210119
  Receipt Date: 20210121
  Transmission Date: 20210419
  Serious: Yes (Death)
  Sender: FDA-Public Use
  Company Number: FR-BAYER-2021-025283

PATIENT
  Age: 50 Year
  Sex: Male

DRUGS (1)
  1. VITRAKVI [Suspect]
     Active Substance: LAROTRECTINIB
     Indication: PANCREATIC CARCINOMA
     Dosage: UNK
     Dates: start: 20201023

REACTIONS (3)
  - Gastrointestinal haemorrhage [Fatal]
  - Tumour invasion [Fatal]
  - Pancreatic carcinoma [Fatal]
